FAERS Safety Report 15103299 (Version 2)
Quarter: 2018Q3

REPORT INFORMATION
  Report Type: Spontaneous
  Country: US (occurrence: US)
  Receive Date: 20180703
  Receipt Date: 20180717
  Transmission Date: 20181010
  Serious: No
  Sender: FDA-Public Use
  Company Number: US-PFIZER INC-2018264375

PATIENT
  Age: 44 Year
  Sex: Female
  Weight: 49.9 kg

DRUGS (1)
  1. GENOTROPIN [Suspect]
     Active Substance: SOMATROPIN
     Indication: SKIN DISORDER
     Dosage: 0.2 MG, UNK

REACTIONS (1)
  - Product use in unapproved indication [Unknown]
